FAERS Safety Report 5198948-6 (Version None)
Quarter: 2006Q4

REPORT INFORMATION
  Report Type: 
  Country: None (occurrence: None)
  Receive Date: 20060920
  Receipt Date: 20050714
  Transmission Date: 20070319
  Serious: Yes (Death)
  Sender: FDA-Public Use
  Company Number: 05P-163-0303146-00

PATIENT
  Age: 74 Year
  Sex: Female

DRUGS (4)
  1. SYNTHROID [Suspect]
     Indication: HYPOTHYROIDISM
     Dosage: 200 MG, 1 IN 1 D, PER ORAL
     Route: 048
  2. CLOPIDOGREL BISULFATE [Concomitant]
  3. SERTRALINE HYDROCHLORIDE [Concomitant]
  4. LEVETIRACETAM [Concomitant]

REACTIONS (1)
  - DEATH [None]
